FAERS Safety Report 18432138 (Version 4)
Quarter: 2021Q3

REPORT INFORMATION
  Report Type: Spontaneous
  Country: US (occurrence: US)
  Receive Date: 20201027
  Receipt Date: 20210812
  Transmission Date: 20211014
  Serious: No
  Sender: FDA-Public Use
  Company Number: US-SA-2020SA302024

PATIENT
  Age: 56 Year
  Sex: Female

DRUGS (1)
  1. KEVZARA [Suspect]
     Active Substance: SARILUMAB
     Indication: RHEUMATOID ARTHRITIS
     Dosage: 200 MG, QOW
     Route: 058
     Dates: start: 20191019

REACTIONS (10)
  - Tongue discomfort [Unknown]
  - Arthralgia [Unknown]
  - Pain [Unknown]
  - Oral disorder [Unknown]
  - Condition aggravated [Unknown]
  - Dry mouth [Unknown]
  - Glossodynia [Unknown]
  - Aphthous ulcer [Unknown]
  - Oral pain [Unknown]
  - Joint swelling [Unknown]

NARRATIVE: CASE EVENT DATE: 20201021
